FAERS Safety Report 14817162 (Version 6)
Quarter: 2018Q3

REPORT INFORMATION
  Report Type: Spontaneous
  Country: LT (occurrence: LT)
  Receive Date: 20180426
  Receipt Date: 20180801
  Transmission Date: 20181010
  Serious: Yes (Life-Threatening, Hospitalization, Other)
  Sender: FDA-Public Use
  Company Number: LT-MYLANLABS-2018M1027050

PATIENT
  Age: 53 Year
  Sex: Female

DRUGS (21)
  1. TRAMADOL. [Suspect]
     Active Substance: TRAMADOL
     Indication: PAIN
     Dosage: 100 MG, QD
     Route: 048
     Dates: start: 2016
  2. FENTANYL. [Interacting]
     Active Substance: FENTANYL
     Indication: PAIN
     Dosage: 75 ?G, QH (LOCAL, PATCH)
     Route: 062
     Dates: start: 2016
  3. TIANEPTINE [Interacting]
     Active Substance: TIANEPTINE
     Indication: PAIN MANAGEMENT
  4. CYANOCOBALAMIN. [Concomitant]
     Active Substance: CYANOCOBALAMIN
     Indication: PREMEDICATION
     Dosage: 1000 MG, UNK
     Route: 065
  5. DEXAMETHASONE. [Concomitant]
     Active Substance: DEXAMETHASONE
     Indication: PREMEDICATION
     Dosage: 4 MG, QD
     Route: 048
     Dates: start: 20161120, end: 20161121
  6. ONDANSETRON [Interacting]
     Active Substance: ONDANSETRON
     Indication: PROPHYLAXIS
  7. CISPLATIN. [Interacting]
     Active Substance: CISPLATIN
     Indication: PLEURAL MESOTHELIOMA
     Dosage: 150 MG, QD (0.5MG/ML 100ML?II CYCLE)
     Route: 042
     Dates: start: 201611
  8. FENTANYL. [Interacting]
     Active Substance: FENTANYL
     Indication: PAIN PROPHYLAXIS
  9. APREPITANT. [Interacting]
     Active Substance: APREPITANT
     Indication: PROPHYLAXIS
  10. TIANEPTINE [Interacting]
     Active Substance: TIANEPTINE
     Indication: PAIN
  11. DEXAMETHASONE. [Concomitant]
     Active Substance: DEXAMETHASONE
     Indication: DRUG TOLERANCE
  12. ALPRAZOLAM. [Interacting]
     Active Substance: ALPRAZOLAM
     Indication: ANXIETY DISORDER
     Dosage: 0.5 MG, QD
     Route: 048
     Dates: start: 2016
  13. PEMETREXED DISODIUM [Interacting]
     Active Substance: PEMETREXED DISODIUM
     Indication: PLEURAL MESOTHELIOMA
     Dosage: UNK, II CYCLE
     Route: 065
     Dates: start: 201611
  14. TIANEPTINE [Interacting]
     Active Substance: TIANEPTINE
     Indication: DEPRESSION
     Dosage: 12.5 MG, QD
     Route: 048
     Dates: start: 2016
  15. ANGIOCELL [Interacting]
     Active Substance: SHARK CARTILAGE\SHARK, UNSPECIFIED
     Indication: PRODUCT USED FOR UNKNOWN INDICATION
     Dosage: 7.5 ML, QD
     Route: 048
     Dates: start: 2016
  16. APREPITANT. [Interacting]
     Active Substance: APREPITANT
     Indication: PROPHYLAXIS OF NAUSEA AND VOMITING
     Dosage: 125 MG, QD
     Route: 048
     Dates: start: 20161121, end: 20161121
  17. FOLIC ACID. [Interacting]
     Active Substance: FOLIC ACID
     Indication: PREMEDICATION
     Dosage: 1000 MG, QD
     Route: 042
     Dates: start: 2016
  18. MANNITOL. [Interacting]
     Active Substance: MANNITOL
     Indication: DRUG TOXICITY PROPHYLAXIS
     Dosage: 1 DF, QD (1000 ML 10 PROC.)
     Route: 042
     Dates: start: 20161121, end: 20161121
  19. TRAMADOL. [Suspect]
     Active Substance: TRAMADOL
     Indication: PAIN PROPHYLAXIS
  20. ONDANSETRON [Interacting]
     Active Substance: ONDANSETRON
     Indication: PROPHYLAXIS OF NAUSEA AND VOMITING
     Dosage: 8 MG, QD
     Route: 048
     Dates: start: 20161121, end: 20161121
  21. BETALOC                            /00376902/ [Interacting]
     Active Substance: METOPROLOL TARTRATE
     Indication: HYPERTENSION
     Dosage: 47.5 MG, QD
     Route: 048
     Dates: start: 2016

REACTIONS (11)
  - Toxicity to various agents [Unknown]
  - Loss of consciousness [Recovered/Resolved]
  - Cardiac arrest [Recovered/Resolved]
  - Haemodynamic instability [Recovered/Resolved]
  - Sudden cardiac death [Recovered/Resolved]
  - Drug interaction [Unknown]
  - Hypomagnesaemia [Unknown]
  - Anaphylactic reaction [Recovered/Resolved]
  - Hypersensitivity [Recovered/Resolved]
  - Cardiotoxicity [Recovered/Resolved]
  - Circulatory collapse [Recovered/Resolved]

NARRATIVE: CASE EVENT DATE: 2016
